FAERS Safety Report 19825523 (Version 2)
Quarter: 2021Q4

REPORT INFORMATION
  Report Type: Spontaneous
  Country: US (occurrence: US)
  Receive Date: 20210914
  Receipt Date: 20211117
  Transmission Date: 20220303
  Serious: Yes (Other)
  Sender: FDA-Public Use
  Company Number: US-BIOGEN-2021BI01047938

PATIENT
  Sex: Female

DRUGS (2)
  1. TYSABRI [Suspect]
     Active Substance: NATALIZUMAB
     Indication: Multiple sclerosis
     Route: 065
     Dates: start: 20200603, end: 20210602
  2. TYSABRI [Suspect]
     Active Substance: NATALIZUMAB
     Route: 065

REACTIONS (5)
  - Blindness [Unknown]
  - Tympanic membrane perforation [Unknown]
  - Vein disorder [Unknown]
  - Headache [Unknown]
  - Injection site rash [Unknown]
